FAERS Safety Report 7146057-9 (Version None)
Quarter: 2010Q4

REPORT INFORMATION
  Report Type: 
  Country: None (occurrence: None)
  Receive Date: 20101208
  Receipt Date: 20100927
  Transmission Date: 20110411
  Serious: No
  Sender: FDA-Public Use
  Company Number: US-BAYER-201022284BCC

PATIENT
  Sex: Male
  Weight: 99.773 kg

DRUGS (3)
  1. ALEVE [Suspect]
     Indication: PAIN
     Dosage: 220 MG, QD
     Route: 048
     Dates: start: 20100925
  2. METFORMIN [Concomitant]
  3. LISINOPRIL [Concomitant]

REACTIONS (1)
  - PAIN [None]
